FAERS Safety Report 7063361-3 (Version None)
Quarter: 2010Q4

REPORT INFORMATION
  Report Type: 
  Country: None (occurrence: None)
  Receive Date: 20101026
  Receipt Date: 20091204
  Transmission Date: 20110411
  Serious: No
  Sender: FDA-Public Use
  Company Number: US-ABBOTT-09P-163-0607644-00

PATIENT
  Sex: Female
  Weight: 74.456 kg

DRUGS (11)
  1. LUPRON DEPOT [Suspect]
     Indication: ENDOMETRIOSIS
     Route: 050
     Dates: start: 20090801
  2. AYGESTIN [Concomitant]
     Indication: MOOD SWINGS
     Dates: start: 20091001
  3. AYGESTIN [Concomitant]
     Indication: HOT FLUSH
  4. AYGESTIN [Concomitant]
     Indication: ENDOMETRIOSIS
  5. VITAMIN B-12 [Concomitant]
     Indication: FATIGUE
  6. GENERIC FOR LITHIUM [Concomitant]
     Indication: MOOD SWINGS
  7. LEVOTHYROXINE [Concomitant]
     Indication: PRODUCT USED FOR UNKNOWN INDICATION
  8. PROZAC [Concomitant]
     Indication: PRODUCT USED FOR UNKNOWN INDICATION
  9. XANAX [Concomitant]
     Indication: PRODUCT USED FOR UNKNOWN INDICATION
  10. PHENAZOPYRIDINE HCL TAB [Concomitant]
     Indication: PRODUCT USED FOR UNKNOWN INDICATION
  11. VALIUM [Concomitant]
     Indication: PRODUCT USED FOR UNKNOWN INDICATION

REACTIONS (10)
  - ABDOMINAL PAIN [None]
  - AMNESIA [None]
  - BURNOUT SYNDROME [None]
  - DEPRESSION [None]
  - DYSPNOEA [None]
  - FATIGUE [None]
  - GAIT DISTURBANCE [None]
  - INSOMNIA [None]
  - MENSTRUATION IRREGULAR [None]
  - TREMOR [None]
